FAERS Safety Report 10866271 (Version 2)
Quarter: 2015Q1

REPORT INFORMATION
  Report Type: Spontaneous
  Country: CN (occurrence: None)
  Receive Date: 20150220
  Receipt Date: 20150226
  Transmission Date: 20150721
  Serious: Yes (Hospitalization)
  Sender: FDA-Public Use
  Company Number: 8012646

PATIENT
  Sex: Male

DRUGS (1)
  1. EUTHYROX (LEVOTHYROXINE SODIUM) (LEVOTHYROXINE SODIUM) [Suspect]
     Active Substance: LEVOTHYROXINE SODIUM
     Indication: ENDOCRINE OPHTHALMOPATHY
     Dosage: 25 MCG (25 MCG, 1 IN 1 D), ORAL
     Route: 048
     Dates: start: 201403, end: 20140331

REACTIONS (3)
  - Endocrine ophthalmopathy [None]
  - Autoimmune thyroiditis [None]
  - Hypothyroidism [None]

NARRATIVE: CASE EVENT DATE: 201404
